FAERS Safety Report 8233337-9 (Version None)
Quarter: 2012Q1

REPORT INFORMATION
  Report Type: 
  Country: None (occurrence: None)
  Receive Date: 20120323
  Receipt Date: 20120323
  Transmission Date: 20120608
  Serious: Yes (Hospitalization)
  Sender: FDA-Public Use
  Company Number: None

PATIENT
  Sex: Male

DRUGS (1)
  1. DABIGATRAN [Suspect]
     Dosage: 75MG PO BID
     Route: 048
     Dates: start: 20120313

REACTIONS (5)
  - DYSPHAGIA [None]
  - OESOPHAGEAL ULCER [None]
  - INTRAPERICARDIAL THROMBOSIS [None]
  - DYSPNOEA [None]
  - PERICARDIAL HAEMORRHAGE [None]
